FAERS Safety Report 9524289 (Version 1)
Quarter: 2013Q1

REPORT INFORMATION
  Report Type: Spontaneous
  Country: US (occurrence: None)
  Receive Date: 20130313
  Receipt Date: 20130313
  Transmission Date: 20140127
  Serious: No
  Sender: FDA-Public Use
  Company Number: 1000037635

PATIENT
  Age: 56 Year
  Sex: Female

DRUGS (4)
  1. SAVELLA (MILNACIPRAN HYDROCHLORIDE) (12.5 MILLIGRAM, TABLETS) [Suspect]
     Indication: NEURALGIA
     Dosage: 12.5 MG (12.5 MG, 1 IN 1 D), ORAL
     Route: 048
     Dates: start: 20120706, end: 20120706
  2. PERCOCET (OXYCODONE, ACETAMINOPHEN) (OXYCODONE, ACETAMINOPHEN) [Concomitant]
  3. SYNTHROID (LEVOTHYROXINE SODIUM) (LEVETHYROXINE SODIUM) [Concomitant]
  4. CYMBALTA (DULOXETINE HYDROCHLORIDE) (DULOXETINE HYDROCHLORIDE)? [Concomitant]

REACTIONS (4)
  - Nausea [None]
  - Vomiting [None]
  - Headache [None]
  - Off label use [None]
